FAERS Safety Report 17672228 (Version 2)
Quarter: 2020Q2

REPORT INFORMATION
  Report Type: Spontaneous
  Country: SK (occurrence: SK)
  Receive Date: 20200415
  Receipt Date: 20200422
  Transmission Date: 20200713
  Serious: Yes (Hospitalization)
  Sender: FDA-Public Use
  Company Number: SK-MYLANLABS-2020M1038016

PATIENT
  Age: 82 Year
  Sex: Female

DRUGS (7)
  1. AMLODIPINE [Suspect]
     Active Substance: AMLODIPINE BESYLATE
     Indication: HYPERTENSION
     Dosage: UNK
     Route: 065
  2. FLUOXETIN [Suspect]
     Active Substance: FLUOXETINE HYDROCHLORIDE
     Indication: DEPRESSION
     Dosage: UNK
     Route: 065
  3. MEMANTINE MYLAN [Suspect]
     Active Substance: MEMANTINE
     Indication: DEMENTIA
     Dosage: UNK
  4. MOCLOBEMIDE [Suspect]
     Active Substance: MOCLOBEMIDE
     Indication: DEPRESSION
     Dosage: UNK
     Route: 065
  5. ZALEPLON. [Suspect]
     Active Substance: ZALEPLON
     Indication: INSOMNIA
     Dosage: UNK
     Route: 065
  6. LEVODOPA [Suspect]
     Active Substance: LEVODOPA
     Indication: PARKINSON^S DISEASE
     Dosage: UNK
  7. LOSARTAN. [Suspect]
     Active Substance: LOSARTAN
     Indication: HYPERTENSION
     Dosage: UNK
     Route: 065

REACTIONS (2)
  - Disorientation [Unknown]
  - Hypotension [Unknown]
